FAERS Safety Report 10906015 (Version 1)
Quarter: 2015Q1

REPORT INFORMATION
  Report Type: Spontaneous
  Country: US (occurrence: US)
  Receive Date: 20150311
  Receipt Date: 20150311
  Transmission Date: 20150721
  Serious: No
  Sender: FDA-Public Use
  Company Number: US-GLAXOSMITHKLINE-US2015024358

PATIENT
  Age: 55 Year
  Sex: Male

DRUGS (4)
  1. XIFAXAN [Concomitant]
     Active Substance: RIFAXIMIN
  2. VENTOLIN HFA [Suspect]
     Active Substance: ALBUTEROL SULFATE
     Indication: CHRONIC OBSTRUCTIVE PULMONARY DISEASE
     Dosage: 2 PUFF(S), PRN
     Route: 055
     Dates: start: 2013
  3. KEPPRA [Concomitant]
     Active Substance: LEVETIRACETAM
  4. LACTULOSE. [Concomitant]
     Active Substance: LACTULOSE

REACTIONS (1)
  - Amphetamines positive [Unknown]

NARRATIVE: CASE EVENT DATE: 20150218
